FAERS Safety Report 4740100-X (Version None)
Quarter: 2005Q3

REPORT INFORMATION
  Report Type: 
  Country: None (occurrence: None)
  Receive Date: 20050810
  Receipt Date: 20050112
  Transmission Date: 20060218
  Serious: No
  Sender: FDA-Public Use
  Company Number: US-GLAXOSMITHKLINE-A0543118A

PATIENT
  Sex: Female

DRUGS (4)
  1. PAXIL [Suspect]
     Indication: PANIC ATTACK
     Dosage: 10MG PER DAY
     Route: 048
     Dates: start: 19981109, end: 20010808
  2. ELAVIL [Concomitant]
     Route: 065
  3. VICODIN [Concomitant]
     Route: 065
  4. PERCOCET [Concomitant]
     Route: 065

REACTIONS (1)
  - DRUG WITHDRAWAL SYNDROME [None]
